FAERS Safety Report 20874563 (Version 1)
Quarter: 2022Q2

REPORT INFORMATION
  Report Type: Other
  Country: TR (occurrence: TR)
  Receive Date: 20220525
  Receipt Date: 20220525
  Transmission Date: 20220721
  Serious: Yes (Death, Hospitalization)
  Sender: FDA-Public Use
  Company Number: TR-BoehringerIngelheim-2022-BI-171741

PATIENT
  Age: 94 Year
  Sex: Female

DRUGS (1)
  1. ALTEPLASE [Suspect]
     Active Substance: ALTEPLASE
     Indication: Pulmonary embolism
     Dosage: 1 HOUR INFUSION
     Route: 042

REACTIONS (3)
  - Haemoptysis [Fatal]
  - Obstructive airways disorder [Fatal]
  - Injection site haemorrhage [Fatal]
